FAERS Safety Report 4838829-8 (Version None)
Quarter: 2005Q4

REPORT INFORMATION
  Report Type: 
  Country: None (occurrence: None)
  Receive Date: 20051129
  Receipt Date: 20051018
  Transmission Date: 20060501
  Serious: No
  Sender: FDA-Public Use
  Company Number: US-GLAXOSMITHKLINE-A0578601A

PATIENT
  Age: 77 Year
  Sex: Female

DRUGS (3)
  1. COMMIT [Suspect]
     Dates: start: 20051008
  2. REMERON [Concomitant]
  3. LEXAPRO [Concomitant]

REACTIONS (4)
  - DEPRESSION [None]
  - GLOSSODYNIA [None]
  - ORAL PAIN [None]
  - SOMNOLENCE [None]
